FAERS Safety Report 23246066 (Version 1)
Quarter: 2023Q4

REPORT INFORMATION
  Report Type: Spontaneous
  Country: US (occurrence: US)
  Receive Date: 20231130
  Receipt Date: 20231130
  Transmission Date: 20240110
  Serious: No
  Sender: FDA-Public Use
  Company Number: US-009507513-2311USA010784

PATIENT
  Age: 3 Year
  Sex: Male

DRUGS (3)
  1. NOXAFIL [Suspect]
     Active Substance: POSACONAZOLE
     Indication: Antifungal treatment
     Dosage: 100 MILLIGRAM, DAILY
     Route: 048
  2. NOXAFIL [Suspect]
     Active Substance: POSACONAZOLE
     Dosage: 200 MILLIGRAM, QD
     Route: 048
  3. NOXAFIL [Suspect]
     Active Substance: POSACONAZOLE
     Dosage: 150 MILLIGRAM, QD
     Route: 048

REACTIONS (1)
  - Wrong technique in product usage process [Unknown]
